FAERS Safety Report 7581489-6 (Version None)
Quarter: 2011Q2

REPORT INFORMATION
  Report Type: 
  Country: None (occurrence: None)
  Receive Date: 20110629
  Receipt Date: 20110617
  Transmission Date: 20111010
  Serious: Yes (Hospitalization)
  Sender: FDA-Public Use
  Company Number: PHFR2011GB02191

PATIENT
  Sex: Male

DRUGS (3)
  1. CLOZAPINE [Suspect]
     Dosage: 125 MG/MANE AND 450 MG/NOCTE
     Route: 048
     Dates: start: 20100824
  2. CLOZAPINE [Suspect]
     Indication: SCHIZOPHRENIA
     Route: 048
     Dates: start: 19980122
  3. LANSOPRAZOLE [Concomitant]
     Dosage: 30 MG, DAILY
     Route: 048
     Dates: start: 20100525

REACTIONS (4)
  - ERECTILE DYSFUNCTION [None]
  - ELECTROCARDIOGRAM QT PROLONGED [None]
  - SINUS TACHYCARDIA [None]
  - HEART RATE INCREASED [None]
